FAERS Safety Report 17037631 (Version 1)
Quarter: 2019Q4

REPORT INFORMATION
  Report Type: Spontaneous
  Country: US (occurrence: US)
  Receive Date: 20191115
  Receipt Date: 20191115
  Transmission Date: 20200122
  Serious: Yes (Other)
  Sender: FDA-Public Use
  Company Number: US-ASTELLAS-2019US045082

PATIENT
  Age: 77 Year
  Sex: Female

DRUGS (1)
  1. MYRBETRIQ [Suspect]
     Active Substance: MIRABEGRON
     Indication: PRODUCT USED FOR UNKNOWN INDICATION
     Route: 065
     Dates: start: 2015

REACTIONS (11)
  - Bone disorder [Unknown]
  - Hypoacusis [Unknown]
  - Tremor [Unknown]
  - Pain [Unknown]
  - Hot flush [Unknown]
  - Amnesia [Unknown]
  - Chest pain [Recovered/Resolved]
  - Haemorrhage [Unknown]
  - Salivary hypersecretion [Unknown]
  - Cough [Unknown]
  - Dizziness [Unknown]

NARRATIVE: CASE EVENT DATE: 201910
